FAERS Safety Report 4917713-5 (Version None)
Quarter: 2006Q1

REPORT INFORMATION
  Report Type: 
  Country: None (occurrence: None)
  Receive Date: 20060215
  Receipt Date: 20060131
  Transmission Date: 20060701
  Serious: Yes (Hospitalization)
  Sender: FDA-Public Use
  Company Number: 221889

PATIENT
  Age: 61 Year
  Sex: Male
  Weight: 65 kg

DRUGS (14)
  1. AVASTIN [Suspect]
     Indication: COLON CANCER
     Dosage: 500 MG, Q3W, INTRAVENOUS
     Route: 042
     Dates: start: 20051110, end: 20060117
  2. AVASTIN [Suspect]
  3. OXALIPLATIN (OXALIPLATIN) [Suspect]
     Indication: COLON CANCER
     Dosage: 230 MG, Q3W, INTRAVENOUS
     Route: 042
     Dates: start: 20051110, end: 20060117
  4. OXALIPLATIN (OXALIPLATIN) [Suspect]
  5. OXALIPLATIN (OXALIPLATIN) [Suspect]
  6. OXALIPLATIN (OXALIPLATIN) [Suspect]
  7. CAPECITABINE (CAPECITABINE) [Suspect]
     Indication: COLON CANCER
     Dosage: 1800 MG, BID, ORAL
     Route: 048
     Dates: start: 20051110, end: 20060117
  8. CAPECITABINE (CAPECITABINE) [Suspect]
  9. FORMOTEROL (FORMOTEROL FUMARATE) [Concomitant]
  10. IPRATROPIUM BROMIDE [Concomitant]
  11. THEOPHYLLINE [Concomitant]
  12. AMBROXOL (AMBROXOL) [Concomitant]
  13. FINASTERIDE [Concomitant]
  14. PERINDOPRIL (PERINDOPRIL) [Concomitant]

REACTIONS (6)
  - BLOOD CALCIUM DECREASED [None]
  - BLOOD SODIUM DECREASED [None]
  - DEHYDRATION [None]
  - DIARRHOEA [None]
  - PYREXIA [None]
  - VOMITING [None]
